FAERS Safety Report 21559715 (Version 1)
Quarter: 2022Q4

REPORT INFORMATION
  Report Type: Spontaneous
  Country: US (occurrence: None)
  Receive Date: 20221106
  Receipt Date: 20221106
  Transmission Date: 20230113
  Serious: Yes (unspecified)
  Sender: FDA-Public Use
  Company Number: None

PATIENT
  Age: 21 Year
  Sex: Female
  Weight: 65.77 kg

DRUGS (6)
  1. NEXPLANON [Suspect]
     Active Substance: ETONOGESTREL
  2. UNSPECIFIED INGREDIENT [Suspect]
     Active Substance: UNSPECIFIED INGREDIENT
  3. LAMOTRIGINE [Concomitant]
     Active Substance: LAMOTRIGINE
  4. ESCITALOPRAM [Concomitant]
     Active Substance: ESCITALOPRAM OXALATE
  5. quietapine [Concomitant]
  6. VITAMIN B [Concomitant]
     Active Substance: VITAMIN B

REACTIONS (3)
  - Menometrorrhagia [None]
  - Abdominal pain upper [None]
  - Muscle spasms [None]

NARRATIVE: CASE EVENT DATE: 20221026
